FAERS Safety Report 7747663-0 (Version None)
Quarter: 2011Q3

REPORT INFORMATION
  Report Type: 
  Country: None (occurrence: None)
  Receive Date: 20110913
  Receipt Date: 20110908
  Transmission Date: 20111222
  Serious: Yes (Other)
  Sender: FDA-Public Use
  Company Number: JP-PFIZER INC-2011211314

PATIENT
  Age: 46 Year
  Sex: Female

DRUGS (4)
  1. LYRICA [Suspect]
     Dosage: 300MG PER DAY
     Route: 048
     Dates: start: 20110101
  2. DEPAS [Suspect]
     Dosage: UNK
  3. LYRICA [Suspect]
     Dosage: 150MG PER DAY
     Route: 048
     Dates: start: 20110803, end: 20110101
  4. LENDORMIN [Concomitant]
     Dosage: UNK

REACTIONS (4)
  - EUPHORIC MOOD [None]
  - FALL [None]
  - FEELING ABNORMAL [None]
  - ROAD TRAFFIC ACCIDENT [None]
